FAERS Safety Report 7385351-3 (Version None)
Quarter: 2011Q1

REPORT INFORMATION
  Report Type: 
  Country: None (occurrence: None)
  Receive Date: 20110330
  Receipt Date: 20101022
  Transmission Date: 20110831
  Serious: No
  Sender: FDA-Public Use
  Company Number: US-MYLANLABS-2010S1018448

PATIENT
  Age: 78 Year
  Sex: Female

DRUGS (10)
  1. LISINOPRIL [Concomitant]
  2. EMSAM [Suspect]
     Indication: DEPRESSION
     Route: 062
     Dates: start: 20080623
  3. ACTONEL [Concomitant]
  4. LOVAZA [Concomitant]
  5. FEMARA [Concomitant]
  6. M.V.I. [Concomitant]
  7. CALCIUM [Concomitant]
  8. ASPIRIN [Concomitant]
  9. ASCORBIC ACID [Concomitant]
  10. VITAMIN D [Concomitant]

REACTIONS (6)
  - APPLICATION SITE URTICARIA [None]
  - APPLICATION SITE RASH [None]
  - APPLICATION SITE EROSION [None]
  - INAPPROPRIATE SCHEDULE OF DRUG ADMINISTRATION [None]
  - APPLICATION SITE ERYTHEMA [None]
  - APPLICATION SITE PRURITUS [None]
